FAERS Safety Report 16781646 (Version 2)
Quarter: 2019Q3

REPORT INFORMATION
  Report Type: Spontaneous
  Country: US (occurrence: US)
  Receive Date: 20190906
  Receipt Date: 20190911
  Transmission Date: 20191005
  Serious: Yes (Other)
  Sender: FDA-Public Use
  Company Number: US-LUNDBECK-DKLU3003456

PATIENT
  Age: 21 Year
  Sex: Male

DRUGS (1)
  1. ONFI [Suspect]
     Active Substance: CLOBAZAM
     Indication: EPILEPSY
     Route: 065
     Dates: start: 20180712

REACTIONS (2)
  - Product dose omission [Not Recovered/Not Resolved]
  - Drug withdrawal convulsions [Not Recovered/Not Resolved]

NARRATIVE: CASE EVENT DATE: 20190901
